FAERS Safety Report 16980170 (Version 4)
Quarter: 2020Q1

REPORT INFORMATION
  Report Type: Spontaneous
  Country: US (occurrence: US)
  Receive Date: 20191031
  Receipt Date: 20200110
  Transmission Date: 20200409
  Serious: No
  Sender: FDA-Public Use
  Company Number: US-BIOGEN-2019BI00801376

PATIENT
  Age: 58 Year
  Sex: Female

DRUGS (1)
  1. TYSABRI [Suspect]
     Active Substance: NATALIZUMAB
     Indication: MULTIPLE SCLEROSIS
     Dosage: INFUSED OVER 1 HOUR
     Route: 042
     Dates: start: 20121231

REACTIONS (7)
  - Insomnia [Unknown]
  - Emotional disorder [Not Recovered/Not Resolved]
  - General physical health deterioration [Unknown]
  - Neck pain [Unknown]
  - Muscle spasms [Unknown]
  - Spinal pain [Unknown]
  - Pain [Unknown]

NARRATIVE: CASE EVENT DATE: 20191025
